FAERS Safety Report 4782454-4 (Version None)
Quarter: 2005Q3

REPORT INFORMATION
  Report Type: 
  Country: None (occurrence: None)
  Receive Date: 20050929
  Receipt Date: 20041110
  Transmission Date: 20060218
  Serious: No
  Sender: FDA-Public Use
  Company Number: 389558

PATIENT
  Age: 83 Year
  Sex: Female
  Weight: 54.5 kg

DRUGS (7)
  1. COREG [Suspect]
     Dosage: 6.25MG TWICE PER DAY
     Route: 048
     Dates: start: 20040101, end: 20041101
  2. NORVASC [Concomitant]
     Indication: HYPERTENSION
     Dosage: 2.5MG PER DAY
     Route: 048
  3. COUMADIN [Concomitant]
     Indication: ATRIAL FIBRILLATION
     Route: 048
  4. FOSAMAX [Concomitant]
     Indication: OSTEOPOROSIS
     Dosage: 70MG WEEKLY
     Route: 048
  5. LASIX [Concomitant]
     Dosage: 40MG PER DAY
     Route: 048
  6. POTASSIUM [Concomitant]
     Dosage: 10MCG AS REQUIRED
     Route: 048
  7. TOPROL-XL [Concomitant]
     Indication: ATRIAL FIBRILLATION

REACTIONS (3)
  - FEELING HOT [None]
  - PAIN IN EXTREMITY [None]
  - SOMNOLENCE [None]
